FAERS Safety Report 20918409 (Version 1)
Quarter: 2022Q2

REPORT INFORMATION
  Report Type: Spontaneous
  Country: JP (occurrence: JP)
  Receive Date: 20220606
  Receipt Date: 20220606
  Transmission Date: 20220721
  Serious: Yes (Hospitalization, Other)
  Sender: FDA-Public Use
  Company Number: JP-PRA-001225

PATIENT
  Age: 11 Month
  Sex: Male

DRUGS (2)
  1. METHYLPREDNISOLONE [Suspect]
     Active Substance: METHYLPREDNISOLONE
     Indication: Encephalitis autoimmune
     Route: 065
  2. HUMAN IMMUNOGLOBULIN G [Suspect]
     Active Substance: HUMAN IMMUNOGLOBULIN G
     Indication: Encephalitis autoimmune
     Route: 042

REACTIONS (3)
  - Encephalitis autoimmune [Unknown]
  - Condition aggravated [Unknown]
  - Product use in unapproved indication [Unknown]
